FAERS Safety Report 10048957 (Version 1)
Quarter: 2014Q1

REPORT INFORMATION
  Report Type: Spontaneous
  Country: SE (occurrence: SE)
  Receive Date: 20140331
  Receipt Date: 20140331
  Transmission Date: 20141002
  Serious: Yes (Hospitalization)
  Sender: FDA-Public Use
  Company Number: SE-ACTAVIS-2013-24985

PATIENT
  Sex: Female

DRUGS (3)
  1. METFORMIN ACTAVIS [Suspect]
     Indication: TYPE 2 DIABETES MELLITUS
     Route: 065
  2. VENLAFAXIN [Concomitant]
     Indication: PRODUCT USED FOR UNKNOWN INDICATION
  3. MIANSERIN [Concomitant]
     Indication: PRODUCT USED FOR UNKNOWN INDICATION

REACTIONS (1)
  - Convulsion [Unknown]
